FAERS Safety Report 24668985 (Version 1)
Quarter: 2024Q4

REPORT INFORMATION
  Report Type: Report from Study
  Country: CA (occurrence: CA)
  Receive Date: 20241127
  Receipt Date: 20241127
  Transmission Date: 20250114
  Serious: Yes (Other)
  Sender: SAMSUNG BIOEPIS
  Company Number: CA-SAMSUNG BIOEPIS-SB-2024-35194

PATIENT
  Age: 71 Year
  Sex: Female
  Weight: 57 kg

DRUGS (1)
  1. RENFLEXIS [Suspect]
     Active Substance: INFLIXIMAB-ABDA
     Indication: Rheumatoid arthritis
     Route: 042

REACTIONS (4)
  - Rheumatoid arthritis [Not Recovered/Not Resolved]
  - Dyspnoea [Unknown]
  - Balance disorder [Unknown]
  - Off label use [Unknown]
